FAERS Safety Report 24070457 (Version 1)
Quarter: 2024Q3

REPORT INFORMATION
  Report Type: Report from Study
  Country: CN (occurrence: CN)
  Receive Date: 20240710
  Receipt Date: 20240710
  Transmission Date: 20241017
  Serious: No
  Sender: ROCHE
  Company Number: CN-ROCHE-3534952

PATIENT
  Age: 65 Year
  Sex: Female
  Weight: 51.0 kg

DRUGS (6)
  1. ALECTINIB [Suspect]
     Active Substance: ALECTINIB
     Indication: Lung cancer metastatic
     Route: 048
     Dates: start: 20210929
  2. ALECTINIB [Suspect]
     Active Substance: ALECTINIB
     Route: 048
     Dates: start: 20200926
  3. URSODIOL [Concomitant]
     Active Substance: URSODIOL
     Indication: Blood bilirubin increased
     Route: 048
     Dates: start: 20210927
  4. ZOLEDRONIC ACID [Concomitant]
     Active Substance: ZOLEDRONIC ACID
     Indication: Metastases to bone
     Dosage: FREQUENCY TEXT:UNKNOWN
     Route: 042
     Dates: start: 20230920, end: 20230920
  5. ZOLEDRONIC ACID [Concomitant]
     Active Substance: ZOLEDRONIC ACID
     Dosage: FREQUENCY TEXT:UNKNOWN
     Route: 042
     Dates: start: 20231018, end: 20231018
  6. JIN SHUI BAO [Concomitant]
     Indication: Blood creatinine increased
     Route: 048
     Dates: start: 20231017

REACTIONS (1)
  - Blood bilirubin increased [Recovering/Resolving]

NARRATIVE: CASE EVENT DATE: 20231017
